FAERS Safety Report 16209548 (Version 1)
Quarter: 2019Q2

REPORT INFORMATION
  Report Type: Spontaneous
  Country: FR (occurrence: FR)
  Receive Date: 20190417
  Receipt Date: 20190417
  Transmission Date: 20190711
  Serious: Yes (Hospitalization)
  Sender: FDA-Public Use
  Company Number: FR-ANIPHARMA-2019-FR-000088

PATIENT
  Age: 72 Year
  Sex: Male

DRUGS (9)
  1. EUPRESSYL [Suspect]
     Active Substance: URAPIDIL
     Route: 048
     Dates: end: 20180522
  2. ATORVASTATIN [Concomitant]
     Active Substance: ATORVASTATIN
     Dosage: UNK
     Route: 065
  3. KARDEGIC [Suspect]
     Active Substance: ASPIRIN DL-LYSINE
     Route: 048
     Dates: end: 20180521
  4. PROPRANOLOL [Concomitant]
     Active Substance: PROPRANOLOL HYDROCHLORIDE
     Dosage: UNK
     Route: 065
  5. CANDESARTAN. [Suspect]
     Active Substance: CANDESARTAN
     Indication: HYPERTENSION
     Dosage: 8 MG QD
     Route: 048
     Dates: end: 20180522
  6. PANTOPRAZOLE [Concomitant]
     Active Substance: PANTOPRAZOLE
     Dosage: UNK
     Route: 065
  7. LOVENOX [Suspect]
     Active Substance: ENOXAPARIN SODIUM
     Dosage: UNKNOWN DOSE EVERY DAY
     Route: 058
     Dates: start: 20180518, end: 20180521
  8. FUROSEMIDE. [Concomitant]
     Active Substance: FUROSEMIDE
     Dosage: UNK
     Route: 061
  9. URAPIDIL [Concomitant]
     Active Substance: URAPIDIL
     Dosage: UNK
     Route: 065

REACTIONS (3)
  - Anaemia [Recovered/Resolved]
  - Haematuria [Recovered/Resolved]
  - Urinary retention [Recovered/Resolved]

NARRATIVE: CASE EVENT DATE: 20180521
